FAERS Safety Report 7224684-8 (Version None)
Quarter: 2011Q1

REPORT INFORMATION
  Report Type: 
  Country: None (occurrence: None)
  Receive Date: 20110106
  Receipt Date: 20110106
  Transmission Date: 20110831
  Serious: Yes (Other)
  Sender: FDA-Public Use
  Company Number: None

PATIENT
  Age: 22 Year
  Sex: Female
  Weight: 127.0072 kg

DRUGS (1)
  1. CEPHALEXIN [Suspect]
     Indication: PHARYNGITIS STREPTOCOCCAL
     Dosage: 20 BID PO    2 DAYS 2011 NOT OPTION
     Route: 048
     Dates: start: 20100102, end: 20100104

REACTIONS (1)
  - VAGINAL INFECTION [None]
